FAERS Safety Report 18452945 (Version 2)
Quarter: 2021Q3

REPORT INFORMATION
  Report Type: Spontaneous
  Country: US (occurrence: US)
  Receive Date: 20201102
  Receipt Date: 20210921
  Transmission Date: 20211014
  Serious: Yes (Other)
  Sender: FDA-Public Use
  Company Number: US-PFIZER INC-2020423763

PATIENT
  Age: 52 Year

DRUGS (1)
  1. EFFEXOR XR [Suspect]
     Active Substance: VENLAFAXINE HYDROCHLORIDE
     Dosage: UNK

REACTIONS (5)
  - Malaise [Unknown]
  - Loss of personal independence in daily activities [Unknown]
  - Autoimmune disorder [Unknown]
  - Skin burning sensation [Unknown]
  - Pain [Unknown]
